FAERS Safety Report 10125708 (Version 2)
Quarter: 2014Q3

REPORT INFORMATION
  Report Type: Spontaneous
  Country: US (occurrence: US)
  Receive Date: 20140425
  Receipt Date: 20140912
  Transmission Date: 20150326
  Serious: No
  Sender: FDA-Public Use
  Company Number: US-009507513-1404USA013217

PATIENT
  Age: 69 Year
  Sex: Female
  Weight: 85.71 kg

DRUGS (5)
  1. CLARITIN [Suspect]
     Active Substance: LORATADINE
     Indication: RHINORRHOEA
     Dosage: 10 MG, QD
     Route: 048
     Dates: start: 20140414, end: 20140427
  2. CLARITIN [Suspect]
     Active Substance: LORATADINE
     Indication: SNEEZING
  3. PEPCID COMPLETE [Concomitant]
     Active Substance: CALCIUM CARBONATE\FAMOTIDINE\MAGNESIUM HYDROXIDE
     Indication: GASTROOESOPHAGEAL REFLUX DISEASE
     Dosage: UNK, UNKNOWN
  4. ASPIRIN. [Concomitant]
     Active Substance: ASPIRIN
     Indication: BACK DISORDER
     Dosage: 81 MG, UNKNOWN
  5. CYMBALTA [Concomitant]
     Active Substance: DULOXETINE HYDROCHLORIDE
     Indication: DEPRESSION
     Dosage: UNK, UNKNOWN

REACTIONS (2)
  - Product quality issue [Unknown]
  - Drug ineffective [Unknown]

NARRATIVE: CASE EVENT DATE: 201404
